FAERS Safety Report 7772952-3 (Version None)
Quarter: 2011Q3

REPORT INFORMATION
  Report Type: 
  Country: None (occurrence: None)
  Receive Date: 20110922
  Receipt Date: 20110203
  Transmission Date: 20111222
  Serious: No
  Sender: FDA-Public Use
  Company Number: US-ASTRAZENECA-2010SE52367

PATIENT
  Age: 10230 Day
  Sex: Male
  Weight: 72.6 kg

DRUGS (3)
  1. XANAX [Concomitant]
     Dates: end: 20110101
  2. SEROQUEL [Suspect]
     Indication: INSOMNIA
     Route: 048
     Dates: start: 20100801, end: 20110123
  3. ADDERALL 5 [Concomitant]

REACTIONS (8)
  - AGITATION [None]
  - ABNORMAL DREAMS [None]
  - HANGOVER [None]
  - DEMENTIA [None]
  - BACK PAIN [None]
  - RENAL PAIN [None]
  - SOMNOLENCE [None]
  - ANXIETY [None]
